APPROVED DRUG PRODUCT: ACETAMINOPHEN AND CODEINE PHOSPHATE
Active Ingredient: ACETAMINOPHEN; CODEINE PHOSPHATE
Strength: 300MG;60MG
Dosage Form/Route: TABLET;ORAL
Application: A088629 | Product #001
Applicant: ANI PHARMACEUTICALS INC
Approved: Mar 6, 1985 | RLD: Yes | RS: No | Type: DISCN